FAERS Safety Report 12518498 (Version 2)
Quarter: 2017Q2

REPORT INFORMATION
  Report Type: Report from Study
  Country: US (occurrence: US)
  Receive Date: 20160630
  Receipt Date: 20170630
  Transmission Date: 20170830
  Serious: Yes (Death, Hospitalization)
  Sender: FDA-Public Use
  Company Number: US-ACTELION-A-NJ2016-138408

PATIENT
  Age: 77 Year
  Sex: Female
  Weight: 59.41 kg

DRUGS (2)
  1. ADCIRCA [Concomitant]
     Active Substance: TADALAFIL
  2. TRACLEER [Suspect]
     Active Substance: BOSENTAN
     Indication: PULMONARY ARTERIAL HYPERTENSION
     Dosage: 31.25 MG, BID
     Route: 048
     Dates: start: 20140613

REACTIONS (6)
  - Myocardial infarction [Unknown]
  - End stage renal disease [Fatal]
  - Sepsis [Fatal]
  - Pneumonia [Fatal]
  - Septic shock [Fatal]
  - Acute respiratory failure [Fatal]
